FAERS Safety Report 21247817 (Version 1)
Quarter: 2022Q3

REPORT INFORMATION
  Report Type: Spontaneous
  Country: US (occurrence: US)
  Receive Date: 20220824
  Receipt Date: 20220824
  Transmission Date: 20221027
  Serious: No
  Sender: FDA-Public Use
  Company Number: US-IGSA-BIG0020041

PATIENT
  Age: 53 Year
  Sex: Female

DRUGS (7)
  1. GAMUNEX-C [Suspect]
     Active Substance: HUMAN IMMUNOGLOBULIN G
     Indication: Primary immunodeficiency syndrome
     Dosage: 10 GRAM, Q.2WK.
     Route: 042
     Dates: start: 20220521
  2. VITAMINS NOS [Concomitant]
     Active Substance: VITAMINS
     Route: 042
  3. ASPIRIN [Concomitant]
     Active Substance: ASPIRIN
     Indication: Headache
  4. TYLENOL [Concomitant]
     Active Substance: ACETAMINOPHEN
     Indication: Headache
  5. TRETINOIN [Concomitant]
     Active Substance: TRETINOIN
     Indication: Acne
     Dosage: 2 DOSAGE FORM, TOTAL
     Route: 061
  6. TRETINOIN [Concomitant]
     Active Substance: TRETINOIN
     Indication: Skin wrinkling
  7. BOTOX [Concomitant]
     Active Substance: ONABOTULINUMTOXINA

REACTIONS (7)
  - Hypersensitivity [Recovering/Resolving]
  - Rash [Recovering/Resolving]
  - Rash vesicular [Recovering/Resolving]
  - Headache [Recovering/Resolving]
  - Photophobia [Recovering/Resolving]
  - Dizziness [Recovering/Resolving]
  - Nausea [Recovering/Resolving]

NARRATIVE: CASE EVENT DATE: 20220801
